FAERS Safety Report 16315007 (Version 1)
Quarter: 2019Q2

REPORT INFORMATION
  Report Type: Report from Study
  Country: CA (occurrence: CA)
  Receive Date: 20190515
  Receipt Date: 20190515
  Transmission Date: 20190711
  Serious: Yes (Other)
  Sender: FDA-Public Use
  Company Number: CA-JNJFOC-20190503981

PATIENT
  Age: 43 Year
  Sex: Female
  Weight: 82.83 kg

DRUGS (2)
  1. DEMEROL [Suspect]
     Active Substance: MEPERIDINE HYDROCHLORIDE
     Indication: CROHN^S DISEASE
     Route: 065
     Dates: end: 20190417
  2. STELARA [Suspect]
     Active Substance: USTEKINUMAB
     Indication: CROHN^S DISEASE
     Dosage: STRENGTH = 90 MG
     Route: 058
     Dates: start: 20160714

REACTIONS (3)
  - Crohn^s disease [Not Recovered/Not Resolved]
  - Road traffic accident [Unknown]
  - Seizure [Unknown]

NARRATIVE: CASE EVENT DATE: 20190417
